FAERS Safety Report 8785101 (Version 2)
Quarter: 2012Q4

REPORT INFORMATION
  Report Type: 
  Country: GB (occurrence: GB)
  Receive Date: 20120914
  Receipt Date: 20121001
  Transmission Date: 20130627
  Serious: Yes (Other)
  Sender: FDA-Public Use
  Company Number: GB-JNJFOC-20120901594

PATIENT
  Sex: Female
  Weight: 2.27 kg

DRUGS (4)
  1. RISPERDAL [Suspect]
     Indication: FOETAL EXPOSURE DURING PREGNANCY
     Route: 064
  2. RISPERDAL CONSTA [Suspect]
     Indication: FOETAL EXPOSURE DURING PREGNANCY
     Route: 064
     Dates: start: 20111220
  3. PETHIDINE [Concomitant]
     Route: 064
     Dates: start: 20120717, end: 20120717
  4. OXYCONTIN [Concomitant]
     Route: 064
     Dates: start: 20120717, end: 20120717

REACTIONS (2)
  - Low birth weight baby [Recovered/Resolved]
  - Maternal drugs affecting foetus [None]
